FAERS Safety Report 4526915-1 (Version None)
Quarter: 2004Q4

REPORT INFORMATION
  Report Type: 
  Country: None (occurrence: None)
  Receive Date: 20041105
  Receipt Date: 20040930
  Transmission Date: 20050328
  Serious: No
  Sender: FDA-Public Use
  Company Number: 2004USFACT00056

PATIENT
  Age: 59 Year
  Sex: Female

DRUGS (4)
  1. FACTIVE [Suspect]
     Indication: RESPIRATORY TRACT INFECTION BACTERIAL
     Dosage: 320.00 MG , QD, ORAL
     Route: 048
  2. XANAX [Concomitant]
  3. PRILOSEC [Concomitant]
  4. PREMARIN [Concomitant]

REACTIONS (2)
  - NAUSEA [None]
  - RASH GENERALISED [None]
